FAERS Safety Report 9138941 (Version 2)
Quarter: 2013Q2

REPORT INFORMATION
  Report Type: Spontaneous
  Country: FR (occurrence: FR)
  Receive Date: 20130305
  Receipt Date: 20130419
  Transmission Date: 20140414
  Serious: Yes (Death, Hospitalization)
  Sender: FDA-Public Use
  Company Number: FR-BRISTOL-MYERS SQUIBB COMPANY-17411869

PATIENT
  Age: 86 Year
  Sex: Male

DRUGS (10)
  1. ABILIFY TABS 5 MG [Suspect]
     Dosage: 1 DF: TABS
     Route: 048
     Dates: start: 20130107
  2. TRANXENE [Suspect]
     Route: 030
     Dates: start: 20130115
  3. KAYEXALATE [Suspect]
  4. FORLAX [Concomitant]
  5. PLAVIX [Concomitant]
  6. ACEBUTOLOL [Concomitant]
  7. XATRAL [Concomitant]
  8. TIMOLOL [Concomitant]
     Dosage: EYE DROPS
  9. VEXOL [Concomitant]
     Dosage: EYE DROPS
  10. POVIDONE [Concomitant]

REACTIONS (9)
  - Death [Fatal]
  - Coma [Recovered/Resolved]
  - Hyperkalaemia [Unknown]
  - Agitation [Unknown]
  - Fall [Unknown]
  - Pneumonia aspiration [Unknown]
  - Atrioventricular block [Unknown]
  - Hypothermia [Unknown]
  - Hypokalaemia [Unknown]
